FAERS Safety Report 25504605 (Version 5)
Quarter: 2025Q3

REPORT INFORMATION
  Report Type: Report from Study
  Country: US (occurrence: US)
  Receive Date: 20250702
  Receipt Date: 20250902
  Transmission Date: 20251020
  Serious: Yes (Death, Other)
  Sender: ACADIA PHARMACEUTICALS
  Company Number: US-ACADIA PHARMACEUTICALS INC.-ACA-2025-PIM-007795

PATIENT
  Age: 59 Year
  Sex: Male

DRUGS (15)
  1. NUPLAZID [Suspect]
     Active Substance: PIMAVANSERIN TARTRATE
     Indication: Parkinson^s disease psychosis
     Dosage: 34 MILLIGRAM, QD
     Route: 048
     Dates: start: 20240825
  2. ASPIRIN [Concomitant]
     Active Substance: ASPIRIN
  3. ATORVASTATIN [Concomitant]
     Active Substance: ATORVASTATIN
  4. BASAGLAR KWIKPEN [Concomitant]
     Active Substance: INSULIN GLARGINE
  5. BUMETANIDE [Concomitant]
     Active Substance: BUMETANIDE
  6. CARBIDOPA LEVODOPA [Concomitant]
     Active Substance: CARBIDOPA\LEVODOPA
  7. CARVEDILOL [Concomitant]
     Active Substance: CARVEDILOL
  8. DONEPEZIL HYDROCHLORIDE [Concomitant]
     Active Substance: DONEPEZIL HYDROCHLORIDE
  9. CYANOCOBALAMIN\FOLIC ACID\PYRIDOXINE HYDROCHLORIDE [Concomitant]
     Active Substance: CYANOCOBALAMIN\FOLIC ACID\PYRIDOXINE HYDROCHLORIDE
  10. MAGNESIUM [Concomitant]
     Active Substance: MAGNESIUM
  11. METFORMIN HYDROCHLORIDE [Concomitant]
     Active Substance: METFORMIN HYDROCHLORIDE
  12. NIFEDIPINE [Concomitant]
     Active Substance: NIFEDIPINE
  13. NOVOLOG [Concomitant]
     Active Substance: INSULIN ASPART
  14. RASAGILINE MESYLATE [Concomitant]
     Active Substance: RASAGILINE MESYLATE
  15. SENEXON-S [Concomitant]
     Active Substance: DOCUSATE SODIUM\SENNOSIDES A AND B

REACTIONS (2)
  - Death [Fatal]
  - Hallucination [Recovering/Resolving]

NARRATIVE: CASE EVENT DATE: 20250806
